FAERS Safety Report 6824055-X (Version None)
Quarter: 2010Q3

REPORT INFORMATION
  Report Type: 
  Country: None (occurrence: None)
  Receive Date: 20100708
  Receipt Date: 20061001
  Transmission Date: 20110219
  Serious: No
  Sender: FDA-Public Use
  Company Number: US-PFIZER INC-2006120355

PATIENT
  Sex: Female
  Weight: 52.16 kg

DRUGS (8)
  1. CHANTIX [Suspect]
     Indication: SMOKING CESSATION THERAPY
     Route: 048
     Dates: start: 20060901
  2. LOZOL [Concomitant]
     Indication: HYPERTENSION
     Route: 048
  3. BENICAR [Concomitant]
     Indication: HYPERTENSION
     Route: 048
  4. POTASSIUM CHLORIDE [Concomitant]
     Route: 048
  5. CALTRATE [Concomitant]
     Route: 048
  6. VITAMIN B6 [Concomitant]
     Route: 048
  7. ACETYLSALICYLIC ACID [Concomitant]
     Route: 048
  8. SAM-E [Concomitant]
     Route: 048

REACTIONS (1)
  - NAUSEA [None]
